FAERS Safety Report 17215923 (Version 1)
Quarter: 2019Q4

REPORT INFORMATION
  Report Type: Spontaneous
  Country: US (occurrence: US)
  Receive Date: 20191206
  Receipt Date: 20191206
  Transmission Date: 20200122
  Serious: Yes (Other)
  Sender: FDA-Public Use
  Company Number: None

PATIENT
  Age: 51 Year
  Sex: Female

DRUGS (17)
  1. COSENTYX [Suspect]
     Active Substance: SECUKINUMAB
     Indication: PSORIATIC ARTHROPATHY
     Dosage: ?          OTHER DOSE:2 SYR;OTHER FREQUENCY:Q4WKS;?
     Route: 058
     Dates: start: 20190405
  2. LISINOPRIL. [Concomitant]
     Active Substance: LISINOPRIL
  3. RABEPRAZOLE [Concomitant]
     Active Substance: RABEPRAZOLE
  4. HYDROMORPHON [Concomitant]
     Active Substance: HYDROMORPHONE
  5. FENTANYL. [Concomitant]
     Active Substance: FENTANYL
  6. FOLIC ACID. [Concomitant]
     Active Substance: FOLIC ACID
  7. METHOTREXATE. [Concomitant]
     Active Substance: METHOTREXATE
  8. ZOLPIDEM ER [Concomitant]
     Active Substance: ZOLPIDEM TARTRATE
  9. ACIPHEX [Concomitant]
     Active Substance: RABEPRAZOLE SODIUM
  10. TIZANIDINE. [Concomitant]
     Active Substance: TIZANIDINE
  11. ZOLPIDEM [Concomitant]
     Active Substance: ZOLPIDEM TARTRATE
  12. DILAUDID [Concomitant]
     Active Substance: HYDROMORPHONE HYDROCHLORIDE
  13. ESTRADIOL. [Concomitant]
     Active Substance: ESTRADIOL
  14. FLUCONAZOLE. [Concomitant]
     Active Substance: FLUCONAZOLE
  15. LANSOPRAZOLE. [Concomitant]
     Active Substance: LANSOPRAZOLE
  16. MYCOPHENOLAT [Concomitant]
     Active Substance: MYCOPHENOLATE MOFETIL
  17. TOPIRAMATE. [Concomitant]
     Active Substance: TOPIRAMATE

REACTIONS (2)
  - Pain [None]
  - Malignant neoplasm progression [None]

NARRATIVE: CASE EVENT DATE: 201911
